FAERS Safety Report 17912547 (Version 3)
Quarter: 2021Q1

REPORT INFORMATION
  Report Type: Report from Study
  Country: CA (occurrence: CA)
  Receive Date: 20200618
  Receipt Date: 20210201
  Transmission Date: 20210419
  Serious: Yes (Disabling, Other)
  Sender: FDA-Public Use
  Company Number: CA-SA-2018SA312105

PATIENT
  Age: 30 Year
  Sex: Female

DRUGS (52)
  1. ACYCLOVIR [ACICLOVIR] [Concomitant]
     Active Substance: ACYCLOVIR
     Indication: PREMEDICATION
     Dosage: 200 MG, QD
     Route: 048
     Dates: start: 20181105, end: 20181109
  2. COVERSYL [PERINDOPRIL ARGININE] [Concomitant]
     Active Substance: PERINDOPRIL ARGININE
     Dosage: 2 MG, PRN
     Route: 065
  3. TEMAZEPAM. [Concomitant]
     Active Substance: TEMAZEPAM
     Dosage: 30 MG, QD
     Route: 048
  4. TEMAZEPAM. [Concomitant]
     Active Substance: TEMAZEPAM
     Dosage: 30 MG, UNK
     Route: 065
  5. ADVAIR HFA [Concomitant]
     Active Substance: FLUTICASONE PROPIONATE\SALMETEROL XINAFOATE
  6. MARIJUANA [Concomitant]
     Active Substance: CANNABIS SATIVA SUBSP. INDICA TOP
     Dosage: UNK UNK, UNK
     Route: 065
  7. RANITIDINE. [Concomitant]
     Active Substance: RANITIDINE
     Indication: PREMEDICATION
     Dosage: 150 MG
     Route: 048
     Dates: start: 20181105, end: 20181109
  8. NAPROXIN [NAPROXEN] [Concomitant]
     Dosage: 500 MG, PRN
     Route: 065
  9. VITAMIN D NOS [Concomitant]
     Active Substance: VITAMIN D NOS
  10. REACTINE [CETIRIZINE HYDROCHLORIDE] [Concomitant]
     Active Substance: CETIRIZINE HYDROCHLORIDE
     Indication: PREMEDICATION
     Dosage: 10 MG, QD
     Route: 048
     Dates: start: 20181105, end: 20181109
  11. COVERSYL [PERINDOPRIL ARGININE] [Concomitant]
     Active Substance: PERINDOPRIL ARGININE
     Dosage: 2 MG, QD
     Route: 048
  12. GABAPENTIN. [Concomitant]
     Active Substance: GABAPENTIN
  13. VALTREX [Concomitant]
     Active Substance: VALACYCLOVIR HYDROCHLORIDE
     Dosage: UNK, PRN
     Route: 065
  14. MYRBETRIQ [Concomitant]
     Active Substance: MIRABEGRON
  15. ALEMTUZUMAB [Suspect]
     Active Substance: ALEMTUZUMAB
     Indication: RELAPSING-REMITTING MULTIPLE SCLEROSIS
     Dosage: 12 MG, QD
     Route: 041
     Dates: start: 20181105, end: 20181109
  16. METHYLPREDNISOLONE. [Concomitant]
     Active Substance: METHYLPREDNISOLONE
     Indication: PREMEDICATION
     Dosage: 1 G, QD
     Route: 042
     Dates: start: 20181105, end: 20181109
  17. VALPROIC ACID. [Concomitant]
     Active Substance: VALPROIC ACID
     Dosage: 500 MG, BID
     Route: 048
  18. HYDROXYQUINOLINE [Concomitant]
     Active Substance: OXYQUINOLINE
     Dosage: 200 MG, BID
     Route: 048
  19. MIRTAZAPINE. [Concomitant]
     Active Substance: MIRTAZAPINE
     Indication: DEPRESSION
     Dosage: UNK; PRN
     Route: 065
  20. ACETAMINOPHEN. [Concomitant]
     Active Substance: ACETAMINOPHEN
     Indication: PREMEDICATION
     Dosage: 1000 MG, QD
     Route: 048
     Dates: start: 20181105, end: 20181109
  21. ESCITALOPRAM [Concomitant]
     Active Substance: ESCITALOPRAM OXALATE
  22. VALPROIC ACID. [Concomitant]
     Active Substance: VALPROIC ACID
     Dosage: 500 MG
     Route: 065
  23. BACLOFEN. [Concomitant]
     Active Substance: BACLOFEN
     Dosage: 10 MG
     Route: 065
  24. BACLOFEN. [Concomitant]
     Active Substance: BACLOFEN
  25. LORAZEPAM. [Concomitant]
     Active Substance: LORAZEPAM
     Dosage: 0.5 MG, UNK
     Route: 065
  26. LORAZEPAM. [Concomitant]
     Active Substance: LORAZEPAM
  27. ADVAIR HFA [Concomitant]
     Active Substance: FLUTICASONE PROPIONATE\SALMETEROL XINAFOATE
     Dosage: 500 DISKUS
     Route: 055
  28. ADVAIR HFA [Concomitant]
     Active Substance: FLUTICASONE PROPIONATE\SALMETEROL XINAFOATE
     Dosage: UNK; PRN
     Route: 065
  29. VITAMIN D [VITAMIN D NOS] [Concomitant]
     Active Substance: VITAMIN D NOS
     Dosage: 5400 IU, QD
     Route: 048
  30. MIRTAZAPINE. [Concomitant]
     Active Substance: MIRTAZAPINE
  31. VALTREX [Concomitant]
     Active Substance: VALACYCLOVIR HYDROCHLORIDE
  32. CORTISONE ACETATE. [Suspect]
     Active Substance: CORTISONE ACETATE
     Dosage: UNK UNK, UNK
     Route: 065
  33. BENADRYL [Concomitant]
     Active Substance: DIPHENHYDRAMINE HYDROCHLORIDE
     Indication: PREMEDICATION
     Dosage: 50 MG, QD
     Route: 048
     Dates: start: 20181105, end: 20181109
  34. NABILONE [Concomitant]
     Active Substance: NABILONE
     Dosage: 1 MG, BID
     Route: 048
  35. ESCITALOPRAM [Concomitant]
     Active Substance: ESCITALOPRAM OXALATE
     Dosage: 20 MG, QD
     Route: 048
  36. COVERSYL [PERINDOPRIL ARGININE] [Concomitant]
     Active Substance: PERINDOPRIL ARGININE
  37. LORAZEPAM. [Concomitant]
     Active Substance: LORAZEPAM
     Route: 065
  38. MORPHINE [Concomitant]
     Active Substance: MORPHINE
     Indication: BACK PAIN
     Dosage: UNK, UNK
     Route: 065
  39. MYRBETRIQ [Concomitant]
     Active Substance: MIRABEGRON
     Dosage: 50 MG
     Route: 065
  40. MARIJUANA [Concomitant]
     Active Substance: CANNABIS SATIVA SUBSP. INDICA TOP
  41. GRAVOL [Concomitant]
     Active Substance: DIMENHYDRINATE
     Indication: PREMEDICATION
     Dosage: 50 MG, QD
     Route: 048
     Dates: start: 20181105, end: 20181109
  42. ESCITALOPRAM [Concomitant]
     Active Substance: ESCITALOPRAM OXALATE
     Dosage: 20 MG
     Route: 065
  43. VALPROIC ACID. [Concomitant]
     Active Substance: VALPROIC ACID
     Dosage: 500 MG, PRN
     Route: 065
  44. VALPROIC ACID. [Concomitant]
     Active Substance: VALPROIC ACID
  45. BACLOFEN. [Concomitant]
     Active Substance: BACLOFEN
     Dosage: 10 MG, PRN
     Route: 065
  46. LORAZEPAM. [Concomitant]
     Active Substance: LORAZEPAM
     Dosage: 0.5 MG, BID
     Route: 048
  47. GABAPENTIN. [Concomitant]
     Active Substance: GABAPENTIN
     Indication: NEURALGIA
     Dosage: 300 MG, BID
     Route: 048
  48. MYRBETRIQ [Concomitant]
     Active Substance: MIRABEGRON
     Route: 065
  49. ESCITALOPRAM [Concomitant]
     Active Substance: ESCITALOPRAM OXALATE
     Route: 065
  50. BACLOFEN. [Concomitant]
     Active Substance: BACLOFEN
     Dosage: 10 MG, BID
     Route: 048
  51. GABAPENTIN. [Concomitant]
     Active Substance: GABAPENTIN
     Route: 065
  52. VITAMIN D [VITAMIN D NOS] [Concomitant]
     Active Substance: VITAMIN D NOS
     Dosage: 5400 IU, PRN
     Route: 048

REACTIONS (49)
  - Nerve injury [Recovered/Resolved]
  - Urine analysis abnormal [Unknown]
  - Decreased immune responsiveness [Not Recovered/Not Resolved]
  - Feeling hot [Recovered/Resolved]
  - Back pain [Recovering/Resolving]
  - Fatigue [Not Recovered/Not Resolved]
  - Mental status changes [Unknown]
  - Feeling abnormal [Not Recovered/Not Resolved]
  - Pain in extremity [Not Recovered/Not Resolved]
  - Nasal pruritus [Recovered/Resolved]
  - Condition aggravated [Unknown]
  - Urinary incontinence [Not Recovered/Not Resolved]
  - Asthenia [Not Recovered/Not Resolved]
  - Condition aggravated [Not Recovered/Not Resolved]
  - Chills [Recovered/Resolved]
  - Tooth loss [Not Recovered/Not Resolved]
  - Fall [Unknown]
  - Spinal column injury [Recovering/Resolving]
  - Muscle injury [Recovered/Resolved]
  - Hypervigilance [Unknown]
  - Road traffic accident [Unknown]
  - Infusion site pain [Recovered/Resolved]
  - Multiple sclerosis [Not Recovered/Not Resolved]
  - Vision blurred [Recovered/Resolved]
  - Throat irritation [Recovered/Resolved]
  - Pruritus [Recovered/Resolved]
  - Nausea [Not Recovered/Not Resolved]
  - Drug ineffective [Unknown]
  - Urinary tract infection [Unknown]
  - Asthenia [Not Recovered/Not Resolved]
  - Dysgeusia [Recovered/Resolved]
  - Post-traumatic stress disorder [Unknown]
  - Wound [Recovered/Resolved]
  - Injection site pain [Recovered/Resolved]
  - Mobility decreased [Not Recovered/Not Resolved]
  - Abscess limb [Recovered/Resolved]
  - Dizziness [Recovered/Resolved]
  - Pain [Not Recovered/Not Resolved]
  - Swelling [Not Recovered/Not Resolved]
  - Tendon injury [Recovered/Resolved]
  - Anxiety [Unknown]
  - Depression [Unknown]
  - Thyroid cancer [Not Recovered/Not Resolved]
  - Cold sweat [Recovered/Resolved]
  - Peripheral coldness [Recovered/Resolved]
  - Tenderness [Not Recovered/Not Resolved]
  - Joint injury [Recovering/Resolving]
  - Muscle spasms [Not Recovered/Not Resolved]
  - Fatigue [Not Recovered/Not Resolved]

NARRATIVE: CASE EVENT DATE: 2018
